FAERS Safety Report 7203628-9 (Version None)
Quarter: 2010Q4

REPORT INFORMATION
  Report Type: 
  Country: None (occurrence: None)
  Receive Date: 20101228
  Receipt Date: 20101228
  Transmission Date: 20110411
  Serious: Yes (Other)
  Sender: FDA-Public Use
  Company Number: None

PATIENT
  Age: 52 Year
  Sex: Female
  Weight: 78.0187 kg

DRUGS (1)
  1. ALLI [Suspect]
     Indication: OVERWEIGHT
     Dosage: 1 CAPLET 3X/DAY PO
     Route: 048
     Dates: start: 20100101, end: 20101201

REACTIONS (1)
  - KERATOCONJUNCTIVITIS SICCA [None]
